FAERS Safety Report 6256382-1 (Version None)
Quarter: 2009Q3

REPORT INFORMATION
  Report Type: 
  Country: None (occurrence: None)
  Receive Date: 20090706
  Receipt Date: 20090625
  Transmission Date: 20100115
  Serious: Yes (Other)
  Sender: FDA-Public Use
  Company Number: FR-AMGEN-US353914

PATIENT
  Sex: Male

DRUGS (2)
  1. ENBREL [Suspect]
     Indication: SPONDYLITIS
     Route: 058
     Dates: start: 20080501
  2. APRANAX [Concomitant]
     Route: 048
     Dates: start: 20070301, end: 20080801

REACTIONS (3)
  - AQUAGENIC PRURITUS [None]
  - DERMATOPHYTOSIS [None]
  - TEMPERATURE REGULATION DISORDER [None]
